FAERS Safety Report 17878407 (Version 2)
Quarter: 2022Q1

REPORT INFORMATION
  Report Type: Spontaneous
  Country: FR (occurrence: FR)
  Receive Date: 20200610
  Receipt Date: 20220221
  Transmission Date: 20220424
  Serious: Yes (Disabling, Other)
  Sender: FDA-Public Use
  Company Number: FR-ZENTIVA-2020-ZT-005732

PATIENT
  Age: 66 Year
  Sex: Male

DRUGS (4)
  1. PRAMIPEXOLE [Suspect]
     Active Substance: PRAMIPEXOLE
     Indication: Parkinson^s disease
     Dosage: UNK (DOSAGE BETWEEN 1.4 AND 2.1 MG)
     Route: 065
     Dates: start: 200702, end: 201411
  2. BENSERAZIDE\LEVODOPA [Suspect]
     Active Substance: BENSERAZIDE\LEVODOPA
     Indication: Dopaminergic drug therapy
     Dosage: UNK
     Route: 065
     Dates: start: 201202
  3. SERTRALINE [Concomitant]
     Active Substance: SERTRALINE HYDROCHLORIDE
     Indication: Depression
     Dosage: 1 DOSAGE FORM
     Route: 065
     Dates: end: 201609
  4. SERTRALINE [Concomitant]
     Active Substance: SERTRALINE HYDROCHLORIDE
     Dosage: 2 DOSAGE FORM
     Route: 065
     Dates: start: 201609

REACTIONS (9)
  - Dependence [Recovered/Resolved]
  - Hypersexuality [Recovered/Resolved]
  - Compulsive sexual behaviour [Recovered/Resolved]
  - Sexual activity increased [Recovered/Resolved]
  - Libido increased [Recovered/Resolved]
  - Excessive masturbation [Recovered/Resolved]
  - Agitation [Recovered/Resolved]
  - Irritability [Recovered/Resolved]
  - Tension [Recovered/Resolved]

NARRATIVE: CASE EVENT DATE: 20140101
